FAERS Safety Report 6842217-2 (Version None)
Quarter: 2010Q3

REPORT INFORMATION
  Report Type: 
  Country: None (occurrence: None)
  Receive Date: 20100714
  Receipt Date: 20070917
  Transmission Date: 20110219
  Serious: Yes (Other)
  Sender: FDA-Public Use
  Company Number: US-PFIZER INC-2007060833

PATIENT
  Sex: Male
  Weight: 78.5 kg

DRUGS (5)
  1. CHANTIX [Suspect]
     Indication: SMOKING CESSATION THERAPY
     Dates: start: 20070525
  2. NIACIN [Interacting]
     Indication: BLOOD CHOLESTEROL INCREASED
     Dates: start: 20070601
  3. ZETIA [Concomitant]
  4. TPN [Concomitant]
  5. FISH OIL [Concomitant]

REACTIONS (6)
  - BLOOD CHOLESTEROL INCREASED [None]
  - COUGH [None]
  - DRUG INTERACTION [None]
  - HERPES SIMPLEX [None]
  - NAUSEA [None]
  - VOMITING [None]
